FAERS Safety Report 8400870-6 (Version None)
Quarter: 2012Q2

REPORT INFORMATION
  Report Type: 
  Country: None (occurrence: None)
  Receive Date: 20120601
  Receipt Date: 20090424
  Transmission Date: 20120825
  Serious: Yes (Life-Threatening, Other)
  Sender: FDA-Public Use
  Company Number: JP-BRISTOL-MYERS SQUIBB COMPANY-14575153

PATIENT
  Age: 59 Year
  Sex: Male
  Weight: 51 kg

DRUGS (10)
  1. FAMOTIDINE [Concomitant]
     Dosage: FORM=TABS
     Dates: start: 20041211
  2. DEPAS [Concomitant]
  3. SENNOSIDE A+B [Concomitant]
     Dosage: TABLET.
     Dates: start: 20041201
  4. AKINETON [Concomitant]
     Dosage: FORM=TABS
     Dates: start: 20041211
  5. HYDROXOCOBALAMIN ACETATE [Concomitant]
     Dosage: FORM=TABS
     Dates: start: 20061208
  6. RISPERIDONE [Suspect]
     Route: 048
     Dates: start: 20041211
  7. LEVOTOMIN [Concomitant]
     Dosage: FORM=TABS
     Dates: start: 20041201
  8. BROTIZOLAM [Concomitant]
     Dosage: TABLET.
     Dates: start: 20041201
  9. ABILIFY [Suspect]
     Indication: SCHIZOPHRENIA
     Dosage: STRENGTH:6MG TAB.
     Route: 048
     Dates: start: 20080401, end: 20090228
  10. ETIZOLAM [Concomitant]
     Dosage: FORM=TABS
     Dates: start: 20041201

REACTIONS (4)
  - HYPONATRAEMIA [None]
  - EPILEPSY [None]
  - NEUROLEPTIC MALIGNANT SYNDROME [None]
  - PNEUMONIA [None]
